FAERS Safety Report 15499606 (Version 1)
Quarter: 2018Q4

REPORT INFORMATION
  Report Type: Spontaneous
  Country: US (occurrence: US)
  Receive Date: 20181015
  Receipt Date: 20181015
  Transmission Date: 20190205
  Serious: No
  Sender: FDA-Public Use
  Company Number: None

PATIENT
  Age: 31 Year
  Sex: Male
  Weight: 100 kg

DRUGS (1)
  1. SECNIDAZOLE [Suspect]
     Active Substance: SECNIDAZOLE

REACTIONS (2)
  - Drug hypersensitivity [None]
  - Fungal rhinitis [None]

NARRATIVE: CASE EVENT DATE: 20181010
